FAERS Safety Report 10384930 (Version 1)
Quarter: 2014Q3

REPORT INFORMATION
  Report Type: Spontaneous
  Country: US (occurrence: None)
  Receive Date: 20140813
  Receipt Date: 20140813
  Transmission Date: 20150326
  Serious: No
  Sender: FDA-Public Use
  Company Number: None

PATIENT
  Age: 39 Year
  Sex: Female
  Weight: 49.9 kg

DRUGS (1)
  1. MIRVASO [Suspect]
     Active Substance: BRIMONIDINE TARTRATE
     Indication: ROSACEA
     Dosage: ONCE A DAY  --  --
     Dates: start: 20140601, end: 20140701

REACTIONS (5)
  - Condition aggravated [None]
  - Rash [None]
  - Pain [None]
  - Impaired work ability [None]
  - Rosacea [None]

NARRATIVE: CASE EVENT DATE: 20140604
